FAERS Safety Report 17978509 (Version 2)
Quarter: 2020Q3

REPORT INFORMATION
  Report Type: Spontaneous
  Country: US (occurrence: US)
  Receive Date: 20200703
  Receipt Date: 20200708
  Transmission Date: 20201103
  Serious: No
  Sender: FDA-Public Use
  Company Number: US-TEVA-2020-US-1794738

PATIENT
  Sex: Male

DRUGS (1)
  1. DEXTROAMPHETAMINE SULFATE. [Suspect]
     Active Substance: DEXTROAMPHETAMINE SULFATE
     Route: 065
     Dates: start: 20191224

REACTIONS (3)
  - Headache [Unknown]
  - Product quality issue [Unknown]
  - Lethargy [Unknown]

NARRATIVE: CASE EVENT DATE: 2020
